FAERS Safety Report 24224076 (Version 4)
Quarter: 2024Q4

REPORT INFORMATION
  Report Type: Spontaneous
  Country: US (occurrence: US)
  Receive Date: 20240819
  Receipt Date: 20241210
  Transmission Date: 20250114
  Serious: Yes (Death)
  Sender: PFIZER
  Company Number: US-PFIZER INC-202400237246

PATIENT
  Age: 85 Year
  Sex: Female

DRUGS (8)
  1. INLYTA [Suspect]
     Active Substance: AXITINIB
     Indication: Lung neoplasm malignant
     Dosage: 5 MG, 2X/DAY
     Route: 048
     Dates: end: 20230605
  2. INLYTA [Suspect]
     Active Substance: AXITINIB
     Indication: Renal cancer metastatic
     Dosage: CAN^T TAKE 2 A DAY BECAUSE IT GIVES HER DIARRHEA
     Route: 048
     Dates: start: 20230606
  3. INLYTA [Suspect]
     Active Substance: AXITINIB
     Dosage: UNK UNK, 2X/DAY
     Dates: start: 202404
  4. INLYTA [Suspect]
     Active Substance: AXITINIB
     Dosage: 5 MG, 2X/DAY
  5. AMLODIPINE [Concomitant]
     Active Substance: AMLODIPINE BESYLATE
     Indication: Hypertension
     Dosage: 10 MG, 1X/DAY
  6. ANASTROZOLE [Concomitant]
     Active Substance: ANASTROZOLE
     Indication: Antioestrogen therapy
     Dosage: 1 MG, 1X/DAY
  7. HYDROXYZINE [Concomitant]
     Active Substance: HYDROXYZINE HYDROCHLORIDE
     Indication: Urticaria
     Dosage: 25 MG, 1X/DAY
  8. METOPROLOL [Concomitant]
     Active Substance: METOPROLOL
     Indication: Hypertension
     Dosage: 25 MG, 1X/DAY

REACTIONS (6)
  - Death [Fatal]
  - Sinusitis [Recovered/Resolved]
  - Diarrhoea [Unknown]
  - Decreased appetite [Unknown]
  - Intentional product misuse [Unknown]
  - Off label use [Unknown]

NARRATIVE: CASE EVENT DATE: 20221001
